FAERS Safety Report 26000040 (Version 1)
Quarter: 2025Q4

REPORT INFORMATION
  Report Type: Spontaneous
  Country: AU (occurrence: AU)
  Receive Date: 20251105
  Receipt Date: 20251105
  Transmission Date: 20260118
  Serious: Yes (Other)
  Sender: RANBAXY
  Company Number: AU-SUN PHARMACEUTICAL INDUSTRIES INC-2025R1-534640

PATIENT
  Age: 22 Year
  Sex: Male

DRUGS (5)
  1. LURASIDONE [Suspect]
     Active Substance: LURASIDONE
     Indication: Drug abuse
     Dosage: UNK
     Route: 048
  2. CLONAZEPAM [Suspect]
     Active Substance: CLONAZEPAM
     Indication: Drug abuse
     Dosage: UNK
     Route: 065
  3. CLONIDINE [Suspect]
     Active Substance: CLONIDINE
     Indication: Drug abuse
     Dosage: UNK
     Route: 065
  4. GALCANEZUMAB [Suspect]
     Active Substance: GALCANEZUMAB
     Indication: Drug abuse
     Dosage: UNK
     Route: 065
  5. LAMOTRIGINE [Suspect]
     Active Substance: LAMOTRIGINE
     Indication: Product used for unknown indication
     Dosage: UNK
     Route: 065

REACTIONS (4)
  - Depressed mood [Unknown]
  - Drug ineffective for unapproved indication [Unknown]
  - Suicidal ideation [Unknown]
  - Suicide attempt [Unknown]
